FAERS Safety Report 20867863 (Version 6)
Quarter: 2024Q1

REPORT INFORMATION
  Report Type: Spontaneous
  Country: US (occurrence: US)
  Receive Date: 20220524
  Receipt Date: 20240125
  Transmission Date: 20240410
  Serious: Yes (Other)
  Sender: FDA-Public Use
  Company Number: US-PFIZER INC-2019033996

PATIENT
  Age: 69 Year
  Sex: Male
  Weight: 95.25 kg

DRUGS (1)
  1. XELJANZ [Suspect]
     Active Substance: TOFACITINIB CITRATE
     Indication: Rheumatoid arthritis
     Dosage: 5 MG, 2X/DAY
     Route: 048

REACTIONS (9)
  - Prostate cancer [Unknown]
  - Skin cancer [Unknown]
  - Systemic lupus erythematosus [Unknown]
  - Arterial occlusive disease [Unknown]
  - Malaise [Unknown]
  - Nodule [Unknown]
  - Musculoskeletal stiffness [Unknown]
  - Fatigue [Unknown]
  - Eye disorder [Unknown]

NARRATIVE: CASE EVENT DATE: 20230101
